FAERS Safety Report 12381077 (Version 1)
Quarter: 2016Q2

REPORT INFORMATION
  Report Type: Spontaneous
  Country: IT (occurrence: IT)
  Receive Date: 20160518
  Receipt Date: 20160518
  Transmission Date: 20160815
  Serious: Yes (Other)
  Sender: FDA-Public Use
  Company Number: IT-ELI_LILLY_AND_COMPANY-IT201605005660

PATIENT
  Age: 52 Year
  Sex: Male

DRUGS (1)
  1. ERBITUX [Suspect]
     Active Substance: CETUXIMAB
     Indication: HEAD AND NECK CANCER STAGE I
     Dosage: 400 MG, CYCLICAL
     Route: 042
     Dates: start: 20160106

REACTIONS (1)
  - Skin toxicity [Unknown]

NARRATIVE: CASE EVENT DATE: 20160504
